FAERS Safety Report 6302962-4 (Version None)
Quarter: 2009Q3

REPORT INFORMATION
  Report Type: 
  Country: None (occurrence: None)
  Receive Date: 20090810
  Receipt Date: 20090803
  Transmission Date: 20100115
  Serious: Yes (Hospitalization)
  Sender: FDA-Public Use
  Company Number: B0587723A

PATIENT
  Age: 64 Year
  Sex: Male

DRUGS (2)
  1. ALKERAN [Suspect]
     Indication: MULTIPLE MYELOMA
     Route: 048
     Dates: start: 20020801, end: 20031201
  2. PREDNISOLONE [Concomitant]
     Indication: MULTIPLE MYELOMA
     Route: 048
     Dates: start: 20020801, end: 20031201

REACTIONS (12)
  - ABDOMINAL DISTENSION [None]
  - AMOEBIC COLITIS [None]
  - COLONIC STENOSIS [None]
  - CONSTIPATION [None]
  - DIARRHOEA [None]
  - FEMORAL ARTERY OCCLUSION [None]
  - FISTULA [None]
  - HAEMATOCHEZIA [None]
  - IMMUNOSUPPRESSION [None]
  - LARGE INTESTINAL ULCER [None]
  - LARGE INTESTINE PERFORATION [None]
  - STAPHYLOCOCCAL INFECTION [None]
